FAERS Safety Report 25675488 (Version 1)
Quarter: 2025Q3

REPORT INFORMATION
  Report Type: Spontaneous
  Country: US (occurrence: None)
  Receive Date: 20250813
  Receipt Date: 20250813
  Transmission Date: 20251021
  Serious: Yes (Hospitalization)
  Sender: FDA-CTU
  Company Number: None

PATIENT
  Sex: Female

DRUGS (11)
  1. MYCOPHENOLIC ACID [Suspect]
     Active Substance: MYCOPHENOLIC ACID
     Dosage: OTHER QUANTITY : 2 TABLETS;?FREQUENCY : TWICE A DAY;?
     Route: 048
     Dates: start: 20250626
  2. CALCITRIOL [Concomitant]
     Active Substance: CALCITRIOL
  3. CALCITRIOL CAP 0.5MCG [Concomitant]
  4. CARVEDILOL TAB 25MG [Concomitant]
  5. EPOGEN [Concomitant]
     Active Substance: ERYTHROPOIETIN
  6. FLUCONAZOLE TAB [Concomitant]
  7. HYDROXYCHLOR TAB [Concomitant]
  8. IRBESARTAN [Concomitant]
     Active Substance: IRBESARTAN
  9. IRBESARTAN [Concomitant]
     Active Substance: IRBESARTAN
  10. LANTUS SOLOS INJ [Concomitant]
  11. LORATADINE TAB [Concomitant]

REACTIONS (1)
  - Blood creatine increased [None]
